FAERS Safety Report 5062254-0 (Version None)
Quarter: 2006Q3

REPORT INFORMATION
  Report Type: 
  Country: None (occurrence: None)
  Receive Date: 20060726
  Receipt Date: 20060714
  Transmission Date: 20061208
  Serious: Yes (Hospitalization)
  Sender: FDA-Public Use
  Company Number: CH-BRISTOL-MYERS SQUIBB COMPANY-13445473

PATIENT
  Age: 73 Year
  Sex: Male

DRUGS (4)
  1. GLUCOVANCE [Suspect]
     Indication: DIABETES MELLITUS NON-INSULIN-DEPENDENT
     Dosage: DOSAGE FORM = ONE 2.5MG/500 TABLET
     Route: 048
     Dates: end: 20060502
  2. AVELOX [Suspect]
     Indication: PNEUMONIA
     Route: 048
     Dates: start: 20060429, end: 20060502
  3. TIATRAL [Concomitant]
     Dates: end: 20060502
  4. ACCURETIC [Concomitant]
     Route: 048
     Dates: end: 20060502

REACTIONS (7)
  - DIARRHOEA [None]
  - DRUG INTERACTION [None]
  - HYPOGLYCAEMIA [None]
  - HYPOKALAEMIA [None]
  - HYPONATRAEMIA [None]
  - TACHYCARDIA [None]
  - TACHYPNOEA [None]
